FAERS Safety Report 4840056-5 (Version None)
Quarter: 2005Q4

REPORT INFORMATION
  Report Type: 
  Country: None (occurrence: None)
  Receive Date: 20051125
  Receipt Date: 20051111
  Transmission Date: 20060501
  Serious: Yes (Death, Other)
  Sender: FDA-Public Use
  Company Number: 2005JP002191

PATIENT
  Sex: Female

DRUGS (2)
  1. PROGRAF [Suspect]
     Indication: BONE MARROW TRANSPLANT
     Dates: start: 20040201, end: 20040201
  2. CYCLOSPORINE [Concomitant]

REACTIONS (9)
  - APHASIA [None]
  - ENCEPHALOPATHY [None]
  - GRAFT VERSUS HOST DISEASE [None]
  - INCONTINENCE [None]
  - MALIGNANT PLEURAL EFFUSION [None]
  - MULTIPLE-DRUG RESISTANCE [None]
  - PSEUDOMONAS INFECTION [None]
  - RESPIRATORY TRACT INFECTION [None]
  - THERAPY NON-RESPONDER [None]
